FAERS Safety Report 9814766 (Version 1)
Quarter: 2014Q1

REPORT INFORMATION
  Report Type: Spontaneous
  Country: US (occurrence: US)
  Receive Date: 20140113
  Receipt Date: 20140113
  Transmission Date: 20141002
  Serious: No
  Sender: FDA-Public Use
  Company Number: US-SANOFI-AVENTIS-2013SA094342

PATIENT
  Age: 61 Year
  Sex: Female

DRUGS (2)
  1. TAXOTERE [Suspect]
     Dosage: TAKEN TO-ABOUT A YEAR AGO
     Route: 065
  2. TAXOL [Concomitant]

REACTIONS (1)
  - Lacrimation increased [Not Recovered/Not Resolved]
